FAERS Safety Report 25089494 (Version 2)
Quarter: 2025Q2

REPORT INFORMATION
  Report Type: Spontaneous
  Country: JP (occurrence: JP)
  Receive Date: 20250318
  Receipt Date: 20250522
  Transmission Date: 20250716
  Serious: No
  Sender: AMGEN
  Company Number: JP-KYOWAKIRIN-2025KK004231

PATIENT
  Age: 8 Decade
  Sex: Male

DRUGS (1)
  1. FILGRASTIM [Suspect]
     Active Substance: FILGRASTIM
     Indication: Neutropenia
     Route: 041
     Dates: start: 20250307

REACTIONS (1)
  - No adverse event [Unknown]
